FAERS Safety Report 19669324 (Version 2)
Quarter: 2021Q3

REPORT INFORMATION
  Report Type: Spontaneous
  Country: JP (occurrence: JP)
  Receive Date: 20210806
  Receipt Date: 20210827
  Transmission Date: 20211014
  Serious: No
  Sender: FDA-Public Use
  Company Number: JP-DSJP-DSJ-2021-124787

PATIENT
  Age: 9 Decade
  Sex: Female

DRUGS (4)
  1. ENHERTU [Suspect]
     Active Substance: FAM-TRASTUZUMAB DERUXTECAN-NXKI
     Dosage: 150 MG, ONCE EVERY 3 WK
     Route: 041
     Dates: start: 20210804, end: 20210804
  2. ENHERTU [Suspect]
     Active Substance: FAM-TRASTUZUMAB DERUXTECAN-NXKI
     Indication: GASTRIC CANCER
     Dosage: 150 MG, ONCE EVERY 3 WK
     Route: 041
  3. ENHERTU [Suspect]
     Active Substance: FAM-TRASTUZUMAB DERUXTECAN-NXKI
     Dosage: 150 MG, ONCE EVERY 3 WK
     Route: 041
     Dates: start: 2021, end: 2021
  4. ENHERTU [Suspect]
     Active Substance: FAM-TRASTUZUMAB DERUXTECAN-NXKI
     Dosage: 150 MG, ONCE EVERY 3 WK
     Route: 041
     Dates: start: 20210210, end: 20210210

REACTIONS (7)
  - Neutrophil count decreased [Unknown]
  - Neutrophil count decreased [Recovering/Resolving]
  - Neutrophil count decreased [Recovered/Resolved]
  - Underdose [Unknown]
  - Cellulitis [Recovering/Resolving]
  - Cytopenia [Recovering/Resolving]
  - Neutrophil count decreased [Recovered/Resolved]

NARRATIVE: CASE EVENT DATE: 2021
